FAERS Safety Report 4685868-6 (Version None)
Quarter: 2005Q2

REPORT INFORMATION
  Report Type: 
  Country: None (occurrence: None)
  Receive Date: 20050606
  Receipt Date: 20050606
  Transmission Date: 20051028
  Serious: Yes (Hospitalization)
  Sender: FDA-Public Use
  Company Number: None

PATIENT
  Sex: Male
  Weight: 75.8 kg

DRUGS (6)
  1. IRESSA [Suspect]
     Indication: OESOPHAGEAL CARCINOMA
     Dosage: 250 MG DAILY PO
     Route: 048
     Dates: start: 20050314
  2. PROTONIX [Suspect]
     Indication: PEPTIC ULCER
     Dosage: 40 MG BID PO
     Route: 048
  3. LOPRESSOR [Suspect]
     Indication: HYPERTENSION
     Dosage: 50 MG BID PO
     Route: 048
  4. REGLAN [Suspect]
     Indication: OESOPHAGEAL CARCINOMA
     Dosage: 10 MG TID PO
     Route: 048
  5. CISPLATIN [Suspect]
     Indication: OESOPHAGEAL CARCINOMA
     Dosage: 38 MG DAILY IV
     Route: 042
     Dates: start: 20050314, end: 20050318
  6. FLUOROURACIL [Suspect]
     Indication: OESOPHAGEAL CARCINOMA
     Dosage: 1900 MG DAILY IV
     Route: 042
     Dates: start: 20050314, end: 20050318

REACTIONS (8)
  - ABDOMINAL DISTENSION [None]
  - BACK PAIN [None]
  - DIARRHOEA [None]
  - FEBRILE NEUTROPENIA [None]
  - FLATULENCE [None]
  - OSTEOMYELITIS [None]
  - POST PROCEDURAL COMPLICATION [None]
  - STREPTOCOCCAL BACTERAEMIA [None]
